FAERS Safety Report 9609005 (Version 2)
Quarter: 2013Q4

REPORT INFORMATION
  Report Type: Spontaneous
  Country: US (occurrence: US)
  Receive Date: 20131009
  Receipt Date: 20131108
  Transmission Date: 20140711
  Serious: No
  Sender: FDA-Public Use
  Company Number: US-ELI_LILLY_AND_COMPANY-US201309010225

PATIENT
  Age: 55 Year
  Sex: Female

DRUGS (6)
  1. ILETIN [Suspect]
     Indication: TYPE 1 DIABETES MELLITUS
     Dosage: UNK
     Dates: start: 1968, end: 1995
  2. NOVOLOG [Concomitant]
     Indication: TYPE 1 DIABETES MELLITUS
     Dosage: UNK
     Route: 058
     Dates: start: 1996
  3. LISINOPRIL [Concomitant]
  4. CALCIUM [Concomitant]
  5. ACTONEL [Concomitant]
  6. SYNTHROID [Concomitant]

REACTIONS (1)
  - Breast cancer [Unknown]
